FAERS Safety Report 10079057 (Version 1)
Quarter: 2014Q2

REPORT INFORMATION
  Report Type: Spontaneous
  Country: US (occurrence: US)
  Receive Date: 20140415
  Receipt Date: 20140415
  Transmission Date: 20141212
  Serious: Yes (Hospitalization, Other)
  Sender: FDA-Public Use
  Company Number: 2014SP000721

PATIENT
  Age: 77 Year
  Sex: Female

DRUGS (1)
  1. VANCOMYCIN [Suspect]
     Indication: CELLULITIS

REACTIONS (5)
  - Linear IgA disease [Unknown]
  - Dermatitis exfoliative [Recovering/Resolving]
  - Rash [Recovering/Resolving]
  - Oral disorder [Unknown]
  - Vaginal lesion [Unknown]
